FAERS Safety Report 18679100 (Version 2)
Quarter: 2021Q1

REPORT INFORMATION
  Report Type: Spontaneous
  Country: PK (occurrence: PK)
  Receive Date: 20201229
  Receipt Date: 20210106
  Transmission Date: 20210419
  Serious: Yes (Death)
  Sender: FDA-Public Use
  Company Number: PK-NOVOPROD-776939

PATIENT
  Age: 83 Year
  Sex: Male

DRUGS (1)
  1. RYZODEG 70/30 [Suspect]
     Active Substance: INSULIN ASPART\INSULIN DEGLUDEC
     Indication: TYPE 2 DIABETES MELLITUS
     Dosage: 32 IU, QD(18+14 IU)
     Route: 058
     Dates: start: 20200401, end: 20201204

REACTIONS (1)
  - Hepatic cancer metastatic [Fatal]

NARRATIVE: CASE EVENT DATE: 202009
